FAERS Safety Report 18853388 (Version 2)
Quarter: 2021Q1

REPORT INFORMATION
  Report Type: Report from Study
  Country: KR (occurrence: KR)
  Receive Date: 20210205
  Receipt Date: 20210325
  Transmission Date: 20210420
  Serious: Yes (Hospitalization)
  Sender: FDA-Public Use
  Company Number: KR-ELI_LILLY_AND_COMPANY-KR202102001568

PATIENT
  Age: 50 Year
  Sex: Male
  Weight: 66.1 kg

DRUGS (7)
  1. BIPHENYL DICARBOXYLATE [Concomitant]
     Indication: PROPHYLAXIS
     Dosage: UNK
     Dates: start: 2015
  2. RAMUCIRUMAB [Suspect]
     Active Substance: RAMUCIRUMAB
     Indication: GASTRIC CANCER
     Dosage: 8 MG/KG, CYCLICAL
     Route: 042
     Dates: start: 20201216
  3. PACLITAXEL. [Suspect]
     Active Substance: PACLITAXEL
     Indication: GASTRIC CANCER
     Dosage: 80 MG/M2, CYCLICAL
     Dates: start: 20201216
  4. TELMINUVO [Concomitant]
     Active Substance: LEVAMLODIPINE\TELMISARTAN
     Indication: HYPERTENSION
     Dosage: UNK
     Dates: start: 2015
  5. TAMIPOOL [Concomitant]
     Active Substance: VITAMINS
     Indication: ANTIBIOTIC THERAPY
     Dosage: UNK
     Route: 042
     Dates: start: 20201229, end: 20210112
  6. AMOCLA [AMOXICILLIN TRIHYDRATE;CLAVULANATE PO [Concomitant]
     Indication: ANTIBIOTIC THERAPY
     Dosage: UNK
     Dates: start: 20201229, end: 20210113
  7. URSA [Concomitant]
     Active Substance: URSODIOL
     Indication: PROPHYLAXIS
     Dosage: UNK
     Dates: start: 2015

REACTIONS (1)
  - Anal abscess [Recovered/Resolved]

NARRATIVE: CASE EVENT DATE: 20210104
